FAERS Safety Report 9708441 (Version 2)
Quarter: 2014Q1

REPORT INFORMATION
  Report Type: Spontaneous
  Country: BR (occurrence: BR)
  Receive Date: 20131125
  Receipt Date: 20140204
  Transmission Date: 20141002
  Serious: Yes (Other)
  Sender: FDA-Public Use
  Company Number: BR-PFIZER INC-2013334472

PATIENT
  Age: 72 Year
  Sex: Female
  Weight: 52 kg

DRUGS (8)
  1. ATENOLOL [Suspect]
     Indication: HYPERTENSION
     Dosage: 50 MG, DAILY
     Route: 048
     Dates: start: 201306
  2. BRILINTA [Suspect]
     Indication: INFARCTION
     Dosage: 90 MG, 2X/DAY
     Route: 048
     Dates: start: 201306, end: 201312
  3. DIAMICRON [Concomitant]
     Indication: DIABETES MELLITUS
     Dosage: UNK
     Route: 065
     Dates: start: 201306
  4. SIMVASTATIN [Concomitant]
     Indication: BLOOD CHOLESTEROL INCREASED
     Dosage: UNK
     Route: 065
  5. ASA [Concomitant]
     Indication: BLOOD DISORDER
     Dosage: UNK
     Route: 065
  6. METFORMIN W/SITAGLIPTIN [Concomitant]
     Indication: DIABETES MELLITUS
     Dosage: UNK
     Route: 065
  7. CITALOPRAM [Concomitant]
     Dosage: UNK
     Route: 065
  8. GLIMEPIRIDE [Concomitant]
     Dosage: UNK
     Route: 065

REACTIONS (3)
  - Pruritus generalised [Recovered/Resolved]
  - Wound [Recovered/Resolved]
  - Weight decreased [Not Recovered/Not Resolved]
